FAERS Safety Report 4425084-6 (Version None)
Quarter: 2004Q3

REPORT INFORMATION
  Report Type: 
  Country: None (occurrence: None)
  Receive Date: 20040813
  Receipt Date: 20040809
  Transmission Date: 20050211
  Serious: Yes (Other)
  Sender: FDA-Public Use
  Company Number: US-JNJFOC-20040802820

PATIENT
  Sex: Male

DRUGS (1)
  1. ULTRACET [Suspect]
     Route: 049

REACTIONS (1)
  - LEUKAEMIA [None]
